FAERS Safety Report 5375417-1 (Version None)
Quarter: 2007Q2

REPORT INFORMATION
  Report Type: 
  Country: None (occurrence: None)
  Receive Date: 20070629
  Receipt Date: 20070619
  Transmission Date: 20071010
  Serious: Yes (Hospitalization, Other)
  Sender: FDA-Public Use
  Company Number: US-PFIZER INC-2007029865

PATIENT
  Age: 77 Year
  Sex: Male
  Weight: 73.5 kg

DRUGS (1)
  1. CHANTIX [Suspect]
     Indication: SMOKING CESSATION THERAPY

REACTIONS (5)
  - DEHYDRATION [None]
  - DROOLING [None]
  - FACIAL PALSY [None]
  - HYPOAESTHESIA FACIAL [None]
  - SYNCOPE [None]
